FAERS Safety Report 12722731 (Version 2)
Quarter: 2016Q3

REPORT INFORMATION
  Report Type: Spontaneous
  Country: US (occurrence: US)
  Receive Date: 20160907
  Receipt Date: 20160915
  Transmission Date: 20161109
  Serious: Yes (Hospitalization)
  Sender: FDA-Public Use
  Company Number: US-ACTELION-A-NJ2016-141528

PATIENT
  Age: 15 Year
  Sex: Female

DRUGS (5)
  1. OPSUMIT [Suspect]
     Active Substance: MACITENTAN
     Indication: PULMONARY HYPERTENSION
     Dosage: 10 MG, QD
     Route: 048
     Dates: start: 20151106
  2. FUROSEMIDE. [Concomitant]
     Active Substance: FUROSEMIDE
     Dosage: 20 MG, TID
     Dates: start: 20151108
  3. NORETHINDRONE. [Concomitant]
     Active Substance: NORETHINDRONE
     Dosage: UNK
     Dates: start: 20150922
  4. LISINOPRIL. [Concomitant]
     Active Substance: LISINOPRIL
     Dosage: 5 MG, QD
     Dates: start: 20151108
  5. FUROSEMIDE. [Concomitant]
     Active Substance: FUROSEMIDE
     Dosage: 40 MG, TID
     Dates: start: 20160825

REACTIONS (1)
  - Fluid overload [Recovered/Resolved]

NARRATIVE: CASE EVENT DATE: 20160825
